FAERS Safety Report 6032980-5 (Version None)
Quarter: 2009Q1

REPORT INFORMATION
  Report Type: 
  Country: None (occurrence: None)
  Receive Date: 20090109
  Receipt Date: 20090108
  Transmission Date: 20090719
  Serious: Yes (Death)
  Sender: FDA-Public Use
  Company Number: A0762745A

PATIENT
  Age: 79 Year
  Sex: Male

DRUGS (1)
  1. SERETIDE [Suspect]
     Indication: DRUG USE FOR UNKNOWN INDICATION
     Route: 065
     Dates: start: 20080601, end: 20081215

REACTIONS (1)
  - PNEUMONIA [None]
